APPROVED DRUG PRODUCT: ISOTRETINOIN
Active Ingredient: ISOTRETINOIN
Strength: 30MG
Dosage Form/Route: CAPSULE;ORAL
Application: A207792 | Product #003 | TE Code: AB1
Applicant: AMNEAL PHARMACEUTICALS OF NY LLC
Approved: Sep 29, 2017 | RLD: No | RS: No | Type: RX